FAERS Safety Report 19807282 (Version 1)
Quarter: 2021Q3

REPORT INFORMATION
  Report Type: Spontaneous
  Country: US (occurrence: US)
  Receive Date: 20210903
  Receipt Date: 20210903
  Transmission Date: 20211014
  Serious: Yes (Death)
  Sender: FDA-Public Use
  Company Number: None

PATIENT
  Age: 79 Year
  Sex: Male

DRUGS (15)
  1. VITAMIN D3 [Concomitant]
     Active Substance: CHOLECALCIFEROL
  2. VITAMIN B12 [Concomitant]
     Active Substance: CYANOCOBALAMIN
  3. MARINOL [Concomitant]
     Active Substance: DRONABINOL
  4. HYOSCYAMINE. [Concomitant]
     Active Substance: HYOSCYAMINE
  5. TUMERIC [Concomitant]
     Active Substance: HERBALS\TURMERIC
  6. VITAMIN C [Concomitant]
     Active Substance: ASCORBIC ACID
  7. SUTENT [Suspect]
     Active Substance: SUNITINIB MALATE
     Indication: GASTROINTESTINAL STROMAL TUMOUR
     Route: 048
     Dates: start: 20200226, end: 20210829
  8. VITAMIN B COMPLEX [Concomitant]
     Active Substance: CYANOCOBALAMIN\DEXPANTHENOL\NIACINAMIDE\PYRIDOXINE HYDROCHLORIDE\RIBOFLAVIN 5^-PHOSPHATE SODIUM\THIAMINE HYDROCHLORIDE\VITAMIN B COMPLEX
  9. FISH OIL [Concomitant]
     Active Substance: FISH OIL
  10. MAGNESIUM [Concomitant]
     Active Substance: MAGNESIUM
  11. COENZYME Q10 [Concomitant]
     Active Substance: DIETARY SUPPLEMENT\UBIDECARENONE
  12. CULTURELLE PRO?WELL [Concomitant]
  13. PEPCID [Concomitant]
     Active Substance: FAMOTIDINE
  14. DOCUSATE SOD [Concomitant]
  15. TESSALON PER [Concomitant]

REACTIONS (1)
  - Death [None]

NARRATIVE: CASE EVENT DATE: 20210829
